FAERS Safety Report 25554867 (Version 2)
Quarter: 2025Q3

REPORT INFORMATION
  Report Type: Spontaneous
  Country: US (occurrence: US)
  Receive Date: 20250715
  Receipt Date: 20250725
  Transmission Date: 20251020
  Serious: Yes (Other)
  Sender: LABORATOIRES SERB
  Company Number: US-SERB S.A.S.-2180547

PATIENT
  Age: 53 Year
  Sex: Female

DRUGS (2)
  1. DIGIFAB [Suspect]
     Active Substance: OVINE DIGOXIN IMMUNE FAB
     Indication: Toxicity to various agents
  2. DIGOXIN [Suspect]
     Active Substance: DIGOXIN

REACTIONS (4)
  - Atrial tachycardia [Recovered/Resolved]
  - Rebound effect [Recovered/Resolved]
  - Coronary artery disease [Recovered/Resolved]
  - Ventricular fibrillation [Recovered/Resolved]
